FAERS Safety Report 16260103 (Version 5)
Quarter: 2023Q2

REPORT INFORMATION
  Report Type: Spontaneous
  Country: US (occurrence: US)
  Receive Date: 20190501
  Receipt Date: 20230406
  Transmission Date: 20230722
  Serious: No
  Sender: FDA-Public Use
  Company Number: US-PFIZER INC-2018532648

PATIENT
  Age: 65 Year
  Sex: Female

DRUGS (14)
  1. DOCETAXEL [Suspect]
     Active Substance: DOCETAXEL
     Indication: Breast cancer metastatic
     Dosage: 150 MG, CYCLIC (EVERY 3 WEEKS FOR 6 CYCLES)
     Dates: start: 20101129, end: 20121220
  2. DOCETAXEL [Suspect]
     Active Substance: DOCETAXEL
     Dosage: 75 MG, CYCLIC (EVERY 3 WEEKS FOR 6 CYCLES)
     Dates: start: 20120913, end: 20121213
  3. DOCETAXEL [Suspect]
     Active Substance: DOCETAXEL
     Dosage: UNK
     Dates: start: 20120913, end: 20121220
  4. TAXOTERE [Suspect]
     Active Substance: DOCETAXEL
     Indication: Breast cancer metastatic
     Dosage: 150 MG, CYCLIC (EVERY 3 WEEKS FOR 6 CYCLES)
     Dates: start: 20101129, end: 20121220
  5. TAXOTERE [Suspect]
     Active Substance: DOCETAXEL
     Dosage: 75 MG, CYCLIC (EVERY 3 WEEKS FOR 6 CYCLES)
     Dates: start: 20120913, end: 20121213
  6. NEOSAR [Concomitant]
     Active Substance: CYCLOPHOSPHAMIDE
     Indication: Chemotherapy
     Dosage: UNK
  7. CYTOXAN [Concomitant]
     Active Substance: CYCLOPHOSPHAMIDE
     Indication: Chemotherapy
     Dosage: UNK
     Dates: start: 20121018, end: 20121220
  8. TAXOL [Concomitant]
     Active Substance: PACLITAXEL
     Indication: Chemotherapy
     Dosage: UNK
  9. LISINOPRIL [Concomitant]
     Active Substance: LISINOPRIL
     Dosage: UNK
  10. METFORMIN [Concomitant]
     Active Substance: METFORMIN HYDROCHLORIDE
     Dosage: UNK
  11. FISH OIL [Concomitant]
     Active Substance: FISH OIL
     Dosage: UNK
  12. ADRIAMYCIN [Concomitant]
     Active Substance: DOXORUBICIN HYDROCHLORIDE
     Indication: Chemotherapy
     Dosage: UNK
     Dates: start: 20121018, end: 20121220
  13. DOXIL [Concomitant]
     Active Substance: DOXORUBICIN HYDROCHLORIDE
     Indication: Chemotherapy
     Dosage: UNK
  14. TAMOXIFEN [Concomitant]
     Active Substance: TAMOXIFEN
     Indication: Hormone therapy
     Dosage: UNK
     Dates: start: 201212

REACTIONS (5)
  - Alopecia [Not Recovered/Not Resolved]
  - Hair texture abnormal [Not Recovered/Not Resolved]
  - Hair disorder [Not Recovered/Not Resolved]
  - Hair colour changes [Not Recovered/Not Resolved]
  - Madarosis [Not Recovered/Not Resolved]

NARRATIVE: CASE EVENT DATE: 20130613
